FAERS Safety Report 22282248 (Version 1)
Quarter: 2023Q2

REPORT INFORMATION
  Report Type: Report from Study
  Country: US (occurrence: US)
  Receive Date: 20230504
  Receipt Date: 20230504
  Transmission Date: 20230722
  Serious: Yes (Hospitalization, Other)
  Sender: FDA-Public Use
  Company Number: US-002147023-NVSC2023US099106

PATIENT
  Sex: Male

DRUGS (3)
  1. ENTRESTO [Suspect]
     Active Substance: SACUBITRIL\VALSARTAN
     Indication: Product used for unknown indication
     Dosage: 1 DOSAGE FORM, QD (24/26 MG) (4-5 YEARS AGO)
     Route: 048
     Dates: start: 2018
  2. BISOPROLOL [Concomitant]
     Active Substance: BISOPROLOL
     Indication: Product used for unknown indication
     Dosage: UNK
     Route: 065
  3. ATORVASTATIN [Concomitant]
     Active Substance: ATORVASTATIN
     Indication: Product used for unknown indication
     Dosage: UNK
     Route: 065

REACTIONS (12)
  - Cardiac disorder [Unknown]
  - Arrhythmia [Unknown]
  - Renal impairment [Recovered/Resolved]
  - Cognitive disorder [Unknown]
  - Dyspnoea [Unknown]
  - Hypoacusis [Unknown]
  - Speech disorder [Unknown]
  - Arthritis [Unknown]
  - Blood pressure abnormal [Unknown]
  - Cough [Unknown]
  - Underdose [Unknown]
  - Incorrect dose administered [Unknown]

NARRATIVE: CASE EVENT DATE: 20200101
